FAERS Safety Report 5042863-5 (Version None)
Quarter: 2006Q3

REPORT INFORMATION
  Report Type: 
  Country: None (occurrence: None)
  Receive Date: 20060705
  Receipt Date: 20060530
  Transmission Date: 20061208
  Serious: Yes (Hospitalization)
  Sender: FDA-Public Use
  Company Number: AU-GLAXOSMITHKLINE-B0426360A

PATIENT
  Age: 71 Year
  Sex: Male
  Weight: 85 kg

DRUGS (9)
  1. AVANDIA [Suspect]
     Dosage: 8MG PER DAY
     Dates: start: 20050901, end: 20060601
  2. DILTIAZEM HCL [Concomitant]
  3. METFORMIN [Concomitant]
  4. GLICLAZIDE [Concomitant]
  5. IRBESARTAN - HYDROCHLOROTHIAZIDE [Concomitant]
  6. ESOMEPRAZOLE [Concomitant]
  7. CLOPIDOGREL [Concomitant]
  8. IMIPRAMINE [Concomitant]
  9. PRAVASTATIN [Concomitant]

REACTIONS (4)
  - DYSPNOEA [None]
  - OEDEMA PERIPHERAL [None]
  - PERICARDIAL EFFUSION [None]
  - WEIGHT INCREASED [None]
